FAERS Safety Report 17451270 (Version 1)
Quarter: 2020Q1

REPORT INFORMATION
  Report Type: Spontaneous
  Country: US (occurrence: US)
  Receive Date: 20200224
  Receipt Date: 20200224
  Transmission Date: 20200409
  Serious: No
  Sender: FDA-Public Use
  Company Number: US-SA-2020SA046002

PATIENT
  Sex: Female

DRUGS (18)
  1. DOXYCYCLINE HYCLATE. [Concomitant]
     Active Substance: DOXYCYCLINE HYCLATE
  2. LANTUS [Concomitant]
     Active Substance: INSULIN GLARGINE
  3. HUMALOG [Concomitant]
     Active Substance: INSULIN LISPRO
  4. REPATHA [Concomitant]
     Active Substance: EVOLOCUMAB
  5. CEPHALEXINE [Concomitant]
     Active Substance: CEPHALEXIN
  6. CARVEDILOL. [Concomitant]
     Active Substance: CARVEDILOL
  7. ASPIRIN (E.C.) [Concomitant]
     Active Substance: ASPIRIN
  8. EZETIMIBE. [Concomitant]
     Active Substance: EZETIMIBE
  9. CLINDAMYCIN HCL [Concomitant]
     Active Substance: CLINDAMYCIN HYDROCHLORIDE
  10. SYNTHROID [Concomitant]
     Active Substance: LEVOTHYROXINE SODIUM
  11. ERYTHROMYCIN. [Concomitant]
     Active Substance: ERYTHROMYCIN
  12. LEVETIRACETAM. [Concomitant]
     Active Substance: LEVETIRACETAM
  13. NITROGLYCERIN. [Concomitant]
     Active Substance: NITROGLYCERIN
  14. ELIQUIS [Concomitant]
     Active Substance: APIXABAN
  15. PRALUENT [Suspect]
     Active Substance: ALIROCUMAB
     Dosage: 75 MG, QOW
     Route: 058
     Dates: start: 20191206
  16. DIGOXIN. [Concomitant]
     Active Substance: DIGOXIN
  17. RED YEAST RICE [Concomitant]
     Active Substance: DIETARY SUPPLEMENT
  18. FUROSEMIDE. [Concomitant]
     Active Substance: FUROSEMIDE

REACTIONS (4)
  - Swelling face [Unknown]
  - Rash [Unknown]
  - Drug hypersensitivity [Unknown]
  - Scratch [Unknown]
